FAERS Safety Report 5910157-9 (Version None)
Quarter: 2008Q4

REPORT INFORMATION
  Report Type: 
  Country: None (occurrence: None)
  Receive Date: 20081006
  Receipt Date: 20081006
  Transmission Date: 20090506
  Serious: Yes (Other)
  Sender: FDA-Public Use
  Company Number: None

PATIENT
  Age: 31 Year
  Sex: Female
  Weight: 81.6475 kg

DRUGS (1)
  1. DILANTIN [Suspect]
     Indication: EPILEPSY
     Dosage: 4 PILLS OR 400MG TID PO, 3 TIMES DAILY
     Route: 048
     Dates: start: 20080501, end: 20080801

REACTIONS (5)
  - ANXIETY [None]
  - CONVULSION [None]
  - FEAR [None]
  - PANIC ATTACK [None]
  - PRODUCT QUALITY ISSUE [None]
